FAERS Safety Report 7993725-2 (Version None)
Quarter: 2011Q4

REPORT INFORMATION
  Report Type: 
  Country: None (occurrence: None)
  Receive Date: 20111220
  Receipt Date: 20111215
  Transmission Date: 20120403
  Serious: Yes (Life-Threatening, Other)
  Sender: FDA-Public Use
  Company Number: JP-BRISTOL-MYERS SQUIBB COMPANY-15760630

PATIENT
  Age: 76 Year
  Sex: Female

DRUGS (8)
  1. ALENDRONATE SODIUM [Concomitant]
  2. UREA [Concomitant]
  3. ALFAROL [Concomitant]
  4. CELECOXIB [Concomitant]
  5. MUCODYNE [Concomitant]
  6. ORENCIA [Suspect]
     Indication: RHEUMATOID ARTHRITIS
     Dosage: 3 TREATMENTS
     Route: 041
     Dates: start: 20110303
  7. BUCILLAMINE [Concomitant]
  8. OMEPRAZOLE [Concomitant]

REACTIONS (3)
  - HEPATITIS B SURFACE ANTIBODY POSITIVE [None]
  - HEPATIC FUNCTION ABNORMAL [None]
  - HEPATITIS B CORE ANTIBODY POSITIVE [None]
